FAERS Safety Report 5896460-X (Version None)
Quarter: 2008Q3

REPORT INFORMATION
  Report Type: 
  Country: None (occurrence: None)
  Receive Date: 20080924
  Receipt Date: 20070731
  Transmission Date: 20090109
  Serious: No
  Sender: FDA-Public Use
  Company Number: US-BAYER-200711976BWH

PATIENT
  Age: 68 Year
  Sex: Female

DRUGS (5)
  1. AVELOX [Suspect]
     Indication: SINUSITIS
     Route: 048
     Dates: start: 20070501
  2. NEXIUM [Concomitant]
     Dosage: TOTAL DAILY DOSE: 40 MG  UNIT DOSE: 40 MG
     Route: 048
  3. ACTONEL [Concomitant]
     Dosage: TOTAL DAILY DOSE: 35 MG  UNIT DOSE: 35 MG
     Route: 048
  4. NASONEX [Concomitant]
     Route: 045
  5. PRAVACHOL [Concomitant]
     Dosage: TOTAL DAILY DOSE: 20 MG  UNIT DOSE: 20 MG
     Route: 048

REACTIONS (4)
  - ABDOMINAL PAIN [None]
  - DIZZINESS [None]
  - FALL [None]
  - LACERATION [None]
